FAERS Safety Report 11744384 (Version 1)
Quarter: 2015Q4

REPORT INFORMATION
  Report Type: Spontaneous
  Country: US (occurrence: US)
  Receive Date: 20151116
  Receipt Date: 20151116
  Transmission Date: 20160304
  Serious: Yes (Other)
  Sender: FDA-Public Use
  Company Number: US-LPDUSPRD-20150620

PATIENT
  Age: 40 Year
  Sex: Female

DRUGS (6)
  1. SUCRALFATE. [Concomitant]
     Active Substance: SUCRALFATE
     Dosage: 1 GM FOUR TIMES/DAY
     Route: 048
  2. INJECTAFER [Suspect]
     Active Substance: FERRIC CARBOXYMALTOSE
     Dosage: 750 MG/250ML NS
     Route: 042
     Dates: start: 20150624, end: 20150624
  3. OMEPRAZOLE. [Concomitant]
     Active Substance: OMEPRAZOLE
     Dosage: 20MG DAILY
     Route: 048
  4. ALPRAZALAM [Concomitant]
     Dosage: 0.5MG THREE TIMES/DAY
     Route: 048
  5. METOPROLOL [Concomitant]
     Active Substance: METOPROLOL
     Dosage: 25MG DAILY
     Route: 048
  6. LAMOTRIGINE. [Concomitant]
     Active Substance: LAMOTRIGINE
     Dosage: 200 MG DAILY
     Route: 048

REACTIONS (3)
  - Chest discomfort [Unknown]
  - Pruritus [Unknown]
  - Dyspnoea [Unknown]

NARRATIVE: CASE EVENT DATE: 20150624
